FAERS Safety Report 19004777 (Version 2)
Quarter: 2021Q3

REPORT INFORMATION
  Report Type: Spontaneous
  Country: DE (occurrence: DE)
  Receive Date: 20210312
  Receipt Date: 20210714
  Transmission Date: 20211014
  Serious: No
  Sender: FDA-Public Use
  Company Number: DE-BRACCO-2021DE00894

PATIENT
  Age: 72 Year
  Sex: Female

DRUGS (4)
  1. TRULICITY [Concomitant]
     Active Substance: DULAGLUTIDE
     Indication: TYPE 2 DIABETES MELLITUS
     Dosage: 1 DF, SIW SINCE 3 YEARS
     Dates: start: 2018
  2. PREDNISOLON [PREDNISONE] [Concomitant]
     Active Substance: PREDNISONE
     Indication: RHEUMATIC DISORDER
     Dosage: 2.5 MG, QD SINCE 3 YEARS
     Dates: start: 2018
  3. PROHANCE [Suspect]
     Active Substance: GADOTERIDOL
     Indication: MAGNETIC RESONANCE IMAGING HEART
     Dosage: UNK UNK, SINGLE
     Dates: start: 202011, end: 202011
  4. CLONIDIN [Concomitant]
     Active Substance: CLONIDINE
     Indication: GLAUCOMA
     Dosage: PER EYE/1 DROP, SINCE 2.5 YEARS
     Route: 047
     Dates: start: 2018

REACTIONS (2)
  - Ocular hyperaemia [Recovered/Resolved]
  - Headache [Recovered/Resolved]

NARRATIVE: CASE EVENT DATE: 202011
